FAERS Safety Report 23063956 (Version 2)
Quarter: 2023Q4

REPORT INFORMATION
  Report Type: Spontaneous
  Country: US (occurrence: US)
  Receive Date: 20231013
  Receipt Date: 20231027
  Transmission Date: 20240109
  Serious: Yes (Life-Threatening, Hospitalization)
  Sender: FDA-Public Use
  Company Number: US-MYLANLABS-2023M1105777

PATIENT
  Age: 26 Year
  Sex: Male
  Weight: 83.9 kg

DRUGS (2)
  1. METHADONE [Interacting]
     Active Substance: METHADONE HYDROCHLORIDE
     Indication: Product used for unknown indication
     Dosage: UNK, 20-25 ML (200-250 MG) OF LIQUID METHADONE
     Route: 048
  2. AMPHETAMINE SULFATE\DEXTROAMPHETAMINE [Interacting]
     Active Substance: AMPHETAMINE SULFATE\DEXTROAMPHETAMINE
     Indication: Product used for unknown indication
     Dosage: 20 MILLIGRAM (EXTENDED-RELEASE)
     Route: 048

REACTIONS (15)
  - Accidental overdose [Unknown]
  - Apnoea [Unknown]
  - Cyanosis [Unknown]
  - Symptom masked [Unknown]
  - Drug interaction [Unknown]
  - Vision blurred [Unknown]
  - Unresponsive to stimuli [Unknown]
  - Toxicity to various agents [Unknown]
  - Dizziness [Unknown]
  - Nausea [Unknown]
  - Vomiting [Unknown]
  - Electrocardiogram QT prolonged [Unknown]
  - Intentional product misuse [Unknown]
  - Drug abuse [Recovering/Resolving]
  - Accidental exposure to product [Recovering/Resolving]
